FAERS Safety Report 25047643 (Version 1)
Quarter: 2025Q1

REPORT INFORMATION
  Report Type: Spontaneous
  Country: JP (occurrence: JP)
  Receive Date: 20250306
  Receipt Date: 20250306
  Transmission Date: 20250409
  Serious: Yes (Hospitalization, Other)
  Sender: MERCK SHARP & DOHME LLC
  Company Number: JP-ONO-2022JP007863

PATIENT
  Age: 68 Year
  Sex: Female
  Weight: 53.4 kg

DRUGS (8)
  1. SITAGLIPTIN [Suspect]
     Active Substance: SITAGLIPTIN
     Indication: Type 2 diabetes mellitus
     Route: 048
     Dates: start: 20220217
  2. TELMISARTAN [Concomitant]
     Active Substance: TELMISARTAN
     Indication: Hypertension
     Dosage: 40 MG, EVERYDAY
  3. AMLODIPINE [Concomitant]
     Active Substance: AMLODIPINE BESYLATE
     Indication: Hypertension
     Dosage: 5 MG, EVERYDAY
  4. IPRAGLIFLOZIN L-PROLINE [Suspect]
     Active Substance: IPRAGLIFLOZIN L-PROLINE
     Indication: Type 2 diabetes mellitus
     Dates: start: 20220309
  5. ANAMORELIN HYDROCHLORIDE [Suspect]
     Active Substance: ANAMORELIN HYDROCHLORIDE
     Indication: Cachexia
     Dosage: 100 MG, EVERYDAY
     Route: 048
     Dates: start: 20220224
  6. APREPITANT [Concomitant]
     Active Substance: APREPITANT
  7. DEXAMETHASONE [Concomitant]
     Active Substance: DEXAMETHASONE
     Route: 042
     Dates: start: 202112
  8. ABRAXANE [Concomitant]
     Active Substance: PACLITAXEL
     Indication: Lung adenocarcinoma
     Dates: start: 20220217

REACTIONS (1)
  - Diabetic ketoacidosis [Recovering/Resolving]

NARRATIVE: CASE EVENT DATE: 20220313
